FAERS Safety Report 9119219 (Version 2)
Quarter: 2013Q2

REPORT INFORMATION
  Report Type: Spontaneous
  Country: AU (occurrence: None)
  Receive Date: 20130130
  Receipt Date: 20130404
  Transmission Date: 20140414
  Serious: Yes (Hospitalization)
  Sender: FDA-Public Use
  Company Number: 2013-000191

PATIENT
  Age: 86 Year
  Sex: Male

DRUGS (1)
  1. ACTONEL COMBI D (RISEDRONATE SODIUM CALCIUM CARBONATE VITAMIN D3) EFFERVESCENT GRANULES, 35MG [Suspect]
     Route: 048

REACTIONS (6)
  - Constipation [None]
  - Abdominal distension [None]
  - Gastrointestinal disorder [None]
  - Gastrointestinal inflammation [None]
  - Gastrointestinal infection [None]
  - Mucous stools [None]
